FAERS Safety Report 14932981 (Version 9)
Quarter: 2019Q2

REPORT INFORMATION
  Report Type: Spontaneous
  Country: US (occurrence: US)
  Receive Date: 20180524
  Receipt Date: 20190411
  Transmission Date: 20190711
  Serious: No
  Sender: FDA-Public Use
  Company Number: US-PFIZER INC-2018211160

PATIENT
  Age: 72 Year
  Sex: Female
  Weight: 88 kg

DRUGS (6)
  1. LYRICA [Suspect]
     Active Substance: PREGABALIN
     Indication: ACROMEGALY
     Dosage: 50 MG, TWICE A DAY
     Dates: start: 201805
  2. LYRICA [Suspect]
     Active Substance: PREGABALIN
     Indication: FIBROMYALGIA
     Dosage: 75 MG, UNK
  3. BISOPROLOL [Concomitant]
     Active Substance: BISOPROLOL
     Indication: CARDIAC DISORDER
     Dosage: 2.5 MG, DAILY
     Route: 048
     Dates: start: 2017
  4. LYRICA [Suspect]
     Active Substance: PREGABALIN
     Indication: NEURALGIA
     Dosage: 50 MG, TWICE A DAY
     Route: 048
     Dates: start: 20180420
  5. BENAZEPRIL HCL [Concomitant]
     Active Substance: BENAZEPRIL HYDROCHLORIDE
     Indication: CARDIAC DISORDER
     Dosage: 10 MG, 1X/DAY
     Route: 048
  6. LYRICA [Suspect]
     Active Substance: PREGABALIN
     Indication: NERVE INJURY
     Dosage: 100 MG, TWICE A DAY (MORNING AND NIGHT BY MOUTH)
     Route: 048

REACTIONS (11)
  - Back pain [Not Recovered/Not Resolved]
  - Body height decreased [Unknown]
  - Formication [Not Recovered/Not Resolved]
  - Drug ineffective [Unknown]
  - Skin burning sensation [Not Recovered/Not Resolved]
  - Insomnia [Not Recovered/Not Resolved]
  - Pain of skin [Unknown]
  - Condition aggravated [Unknown]
  - Pain in extremity [Not Recovered/Not Resolved]
  - Malaise [Unknown]
  - Pain [Unknown]

NARRATIVE: CASE EVENT DATE: 20180602
